FAERS Safety Report 25113791 (Version 1)
Quarter: 2025Q1

REPORT INFORMATION
  Report Type: Spontaneous
  Country: US (occurrence: None)
  Receive Date: 20250321
  Receipt Date: 20250321
  Transmission Date: 20250409
  Serious: Yes (Hospitalization)
  Sender: FDA-CTU
  Company Number: None

PATIENT
  Sex: Female

DRUGS (2)
  1. PREZCOBIX [Suspect]
     Active Substance: COBICISTAT\DARUNAVIR ETHANOLATE
     Indication: HIV infection
     Dosage: OTHER QUANTITY : 800/150MG;?FREQUENCY : DAILY;?
     Route: 048
     Dates: start: 201906
  2. BIKTARVY [Suspect]
     Active Substance: BICTEGRAVIR SODIUM\EMTRICITABINE\TENOFOVIR ALAFENAMIDE FUMARATE
     Indication: HIV infection
     Dosage: OTHER STRENGTH :  50/200/25M;?OTHER QUANTITY : 50/200/25;?FREQUENCY : DAILY;?
     Route: 048
     Dates: start: 201906

REACTIONS (2)
  - Seizure [None]
  - Loss of consciousness [None]
